FAERS Safety Report 9133849 (Version 1)
Quarter: 2013Q1

REPORT INFORMATION
  Report Type: Spontaneous
  Country: US (occurrence: US)
  Receive Date: 20130303
  Receipt Date: 20130303
  Transmission Date: 20140127
  Serious: No
  Sender: FDA-Public Use
  Company Number: US-ENDO PHARMACEUTICALS INC.-VANT20120084

PATIENT
  Age: 75 Year
  Sex: Male
  Weight: 97.61 kg

DRUGS (1)
  1. VANTAS [Suspect]
     Indication: PROSTATE CANCER
     Route: 058
     Dates: start: 20121102

REACTIONS (2)
  - Implant site effusion [Not Recovered/Not Resolved]
  - Implant site swelling [Not Recovered/Not Resolved]
